FAERS Safety Report 8077910-X (Version None)
Quarter: 2012Q1

REPORT INFORMATION
  Report Type: 
  Country: None (occurrence: None)
  Receive Date: 20120127
  Receipt Date: 20110104
  Transmission Date: 20120608
  Serious: No
  Sender: FDA-Public Use
  Company Number: US-ABBOTT-11P-163-0695218-00

PATIENT
  Age: 35 Year
  Sex: Female

DRUGS (4)
  1. METFORMIN HCL [Concomitant]
     Indication: POLYCYSTIC OVARIES
     Route: 048
  2. HUMIRA [Suspect]
     Indication: SPONDYLOARTHROPATHY
     Dates: start: 20100901
  3. ZESTORETIC [Concomitant]
     Indication: HYPERTENSION
     Dosage: THE LOWEST DOSE
  4. NAPROXEN [Concomitant]
     Indication: INFLAMMATION
     Route: 048

REACTIONS (3)
  - DEVICE MALFUNCTION [None]
  - INJECTION SITE HAEMORRHAGE [None]
  - INJECTION SITE HAEMATOMA [None]
